FAERS Safety Report 5129055-6 (Version None)
Quarter: 2006Q4

REPORT INFORMATION
  Report Type: 
  Country: None (occurrence: None)
  Receive Date: 20061011
  Receipt Date: 20060929
  Transmission Date: 20070319
  Serious: Yes (Death, Other)
  Sender: FDA-Public Use
  Company Number: 2006US002172

PATIENT
  Age: 66 Year
  Sex: Female

DRUGS (5)
  1. PROGRAF [Suspect]
     Indication: LIVER TRANSPLANT REJECTION
  2. MYCOPHENOLATE MOFETIL [Concomitant]
  3. PREDNISONE TAB [Concomitant]
  4. METHYLPREDNISOLONE [Concomitant]
  5. SIMULECT [Concomitant]

REACTIONS (7)
  - ASCITES [None]
  - CYTOMEGALOVIRUS COLITIS [None]
  - ENTEROCOCCAL SEPSIS [None]
  - GRAFT VERSUS HOST DISEASE [None]
  - MALAISE [None]
  - MULTI-ORGAN FAILURE [None]
  - RASH GENERALISED [None]
